FAERS Safety Report 9149071 (Version 1)
Quarter: 2013Q1

REPORT INFORMATION
  Report Type: Spontaneous
  Country: HR (occurrence: HR)
  Receive Date: 20130308
  Receipt Date: 20130308
  Transmission Date: 20140127
  Serious: Yes (Other)
  Sender: FDA-Public Use
  Company Number: HR-009507513-1303HRV002189

PATIENT
  Age: 69 Year
  Sex: Male

DRUGS (3)
  1. LIPEX [Suspect]
     Indication: LIPID METABOLISM DISORDER
     Dosage: 40 MG, BID
     Route: 048
     Dates: start: 1992
  2. NORVASC [Interacting]
     Indication: ESSENTIAL HYPERTENSION
     Dosage: 5 MG, QD
     Route: 048
     Dates: start: 1992
  3. CONCOR [Concomitant]
     Dosage: 5 MG, QD
     Route: 048
     Dates: start: 1992

REACTIONS (5)
  - Pain in extremity [Not Recovered/Not Resolved]
  - Gait disturbance [Not Recovered/Not Resolved]
  - Muscular weakness [Not Recovered/Not Resolved]
  - Muscle spasms [Not Recovered/Not Resolved]
  - Labelled drug-drug interaction medication error [Unknown]
